FAERS Safety Report 5590630-6 (Version None)
Quarter: 2008Q1

REPORT INFORMATION
  Report Type: 
  Country: None (occurrence: None)
  Receive Date: 20080114
  Receipt Date: 20080103
  Transmission Date: 20080703
  Serious: Yes (Other)
  Sender: FDA-Public Use
  Company Number: NL-PFIZER INC-2007079297

PATIENT
  Sex: Male
  Weight: 87 kg

DRUGS (3)
  1. LIPITOR [Suspect]
     Indication: BLOOD CHOLESTEROL INCREASED
     Route: 048
     Dates: start: 19971125, end: 20070301
  2. ALLOPURINOL [Concomitant]
  3. BENZBROMARONE [Concomitant]

REACTIONS (10)
  - ACTIVITIES OF DAILY LIVING IMPAIRED [None]
  - ARTHROPATHY [None]
  - CONSTIPATION [None]
  - DEPRESSION [None]
  - GOUT [None]
  - HAEMORRHOIDS [None]
  - INFLAMMATION [None]
  - INFREQUENT BOWEL MOVEMENTS [None]
  - MUSCLE DISORDER [None]
  - OSTEOARTHRITIS [None]
